FAERS Safety Report 25952446 (Version 1)
Quarter: 2025Q4

REPORT INFORMATION
  Report Type: Spontaneous
  Country: US (occurrence: US)
  Receive Date: 20251023
  Receipt Date: 20251023
  Transmission Date: 20260118
  Serious: Yes (Hospitalization)
  Sender: BRISTOL-MYERS SQUIBB COMPANY
  Company Number: US-BRISTOL-MYERS SQUIBB COMPANY-2025-143617

PATIENT
  Age: 93 Year
  Sex: Female

DRUGS (1)
  1. LENALIDOMIDE [Suspect]
     Active Substance: LENALIDOMIDE
     Indication: Pleuritic pain
     Dosage: TAKE 1 CAPSULE BY MOUTH WHOLE EVERY DAY ON DAYS 1-21 OF EACH CYCLE

REACTIONS (1)
  - Hospitalisation [Recovered/Resolved]
